FAERS Safety Report 18797691 (Version 3)
Quarter: 2021Q1

REPORT INFORMATION
  Report Type: Spontaneous
  Country: US (occurrence: US)
  Receive Date: 20210128
  Receipt Date: 20210226
  Transmission Date: 20210419
  Serious: Yes (Hospitalization)
  Sender: FDA-Public Use
  Company Number: US-HIKMA PHARMACEUTICALS USA INC.-US-H14001-21-00261

PATIENT
  Sex: Male

DRUGS (4)
  1. UPTRAVI [Concomitant]
     Active Substance: SELEXIPAG
     Indication: MIGRAINE
     Route: 065
  2. BOSENTAN. [Suspect]
     Active Substance: BOSENTAN
     Indication: PULMONARY ARTERIAL HYPERTENSION
     Route: 048
     Dates: start: 202002
  3. UPTRAVI [Concomitant]
     Active Substance: SELEXIPAG
     Route: 065
  4. UPTRAVI [Concomitant]
     Active Substance: SELEXIPAG
     Route: 065

REACTIONS (3)
  - Product dose omission issue [Unknown]
  - Wisdom teeth removal [Unknown]
  - Migraine [Recovered/Resolved]
